FAERS Safety Report 8819762 (Version 1)
Quarter: 2012Q4

REPORT INFORMATION
  Report Type: 
  Country: US (occurrence: US)
  Receive Date: 20121001
  Receipt Date: 20121001
  Transmission Date: 20130627
  Serious: Yes (Other)
  Sender: FDA-Public Use
  Company Number: US-ROCHE-1104053

PATIENT
  Sex: Female

DRUGS (11)
  1. HERCEPTIN [Suspect]
     Indication: BREAST CANCER FEMALE
     Route: 065
     Dates: start: 20080204
  2. HERCEPTIN [Suspect]
     Route: 065
     Dates: start: 20080211
  3. HERCEPTIN [Suspect]
     Route: 065
     Dates: start: 20080303
  4. HERCEPTIN [Suspect]
     Route: 065
     Dates: start: 20080325
  5. XELODA [Suspect]
     Indication: PRODUCT USED FOR UNKNOWN INDICATION
     Route: 065
  6. TYKERB [Concomitant]
  7. ADRIAMYCIN [Concomitant]
  8. CYTOXAN [Concomitant]
  9. TAXOL [Concomitant]
  10. ESTROGEN [Concomitant]
  11. PROGESTERONE [Concomitant]

REACTIONS (6)
  - Disease progression [Unknown]
  - Nausea [Unknown]
  - Vomiting [Unknown]
  - Metastases to central nervous system [Unknown]
  - Metastases to bone [Unknown]
  - Metastases to liver [Unknown]
